FAERS Safety Report 7542439-1 (Version None)
Quarter: 2011Q2

REPORT INFORMATION
  Report Type: 
  Country: None (occurrence: None)
  Receive Date: 20110613
  Receipt Date: 20110406
  Transmission Date: 20111010
  Serious: No
  Sender: FDA-Public Use
  Company Number: A0921627A

PATIENT
  Age: 53 Year
  Sex: Female

DRUGS (2)
  1. NICODERM CQ [Suspect]
     Dosage: 21MG PER DAY
     Route: 062
     Dates: start: 20110301
  2. NICORETTE (MINT) [Suspect]
     Route: 002
     Dates: start: 20110405, end: 20110405

REACTIONS (4)
  - INSOMNIA [None]
  - APPLICATION SITE IRRITATION [None]
  - MALAISE [None]
  - NAUSEA [None]
